FAERS Safety Report 18058559 (Version 1)
Quarter: 2020Q3

REPORT INFORMATION
  Report Type: Spontaneous
  Country: US (occurrence: US)
  Receive Date: 20200722
  Receipt Date: 20200722
  Transmission Date: 20201103
  Serious: Yes (Disabling)
  Sender: FDA-Public Use
  Company Number: None

PATIENT
  Age: 32 Year
  Sex: Male
  Weight: 87.3 kg

DRUGS (1)
  1. BLUMEN CLEAR ADVANCED INSTANT HAND SANITIZER [Suspect]
     Active Substance: ALCOHOL
     Indication: INFECTION PROPHYLAXIS

REACTIONS (3)
  - Tremor [None]
  - Palpitations [None]
  - Muscle twitching [None]

NARRATIVE: CASE EVENT DATE: 20200722
